APPROVED DRUG PRODUCT: RILUZOLE
Active Ingredient: RILUZOLE
Strength: 50MG
Dosage Form/Route: TABLET;ORAL
Application: A204048 | Product #001 | TE Code: AB
Applicant: ALKEM LABORATORIES LTD
Approved: Mar 30, 2016 | RLD: No | RS: Yes | Type: RX